FAERS Safety Report 25060613 (Version 2)
Quarter: 2025Q2

REPORT INFORMATION
  Report Type: Spontaneous
  Country: US (occurrence: US)
  Receive Date: 20250310
  Receipt Date: 20250403
  Transmission Date: 20250716
  Serious: Yes (Other)
  Sender: TEVA
  Company Number: US-TEVA-VS-3306288

PATIENT

DRUGS (12)
  1. FLUOROURACIL [Suspect]
     Active Substance: FLUOROURACIL
     Indication: Metastatic gastric cancer
     Route: 065
     Dates: start: 202102, end: 202105
  2. FLUOROURACIL [Suspect]
     Active Substance: FLUOROURACIL
     Indication: Metastatic gastric cancer
     Route: 065
     Dates: start: 202008, end: 202012
  3. FLUOROURACIL [Suspect]
     Active Substance: FLUOROURACIL
     Indication: Metastatic gastric cancer
     Route: 065
     Dates: start: 202001, end: 202007
  4. PACLITAXEL [Suspect]
     Active Substance: PACLITAXEL
     Indication: Metastatic gastric cancer
     Route: 065
     Dates: start: 202012, end: 202101
  5. DOCETAXEL [Suspect]
     Active Substance: DOCETAXEL
     Indication: Metastatic gastric cancer
     Route: 065
     Dates: start: 202102, end: 202105
  6. CISPLATIN [Suspect]
     Active Substance: CISPLATIN
     Indication: Metastatic gastric cancer
     Route: 065
     Dates: start: 202102, end: 202105
  7. OXALIPLATIN [Suspect]
     Active Substance: OXALIPLATIN
     Indication: Metastatic gastric cancer
     Route: 065
     Dates: start: 202001, end: 202007
  8. LEUCOVORIN [Suspect]
     Active Substance: LEUCOVORIN\LEUCOVORIN CALCIUM
     Indication: Metastatic gastric cancer
     Route: 065
     Dates: start: 202001, end: 202007
  9. LEUCOVORIN [Suspect]
     Active Substance: LEUCOVORIN\LEUCOVORIN CALCIUM
     Indication: Metastatic gastric cancer
     Route: 065
     Dates: start: 202008, end: 202012
  10. TRASTUZUMAB [Suspect]
     Active Substance: TRASTUZUMAB
     Indication: Metastatic gastric cancer
     Route: 065
     Dates: start: 202001, end: 202007
  11. PEMBROLIZUMAB [Suspect]
     Active Substance: PEMBROLIZUMAB
     Indication: Metastatic gastric cancer
     Route: 065
     Dates: start: 202001, end: 202007
  12. IRINOTECAN [Suspect]
     Active Substance: IRINOTECAN
     Indication: Metastatic gastric cancer
     Route: 065
     Dates: start: 202008, end: 202012

REACTIONS (2)
  - Immune-mediated enterocolitis [Recovered/Resolved]
  - Drug ineffective [Unknown]

NARRATIVE: CASE EVENT DATE: 20200101
